FAERS Safety Report 21303088 (Version 2)
Quarter: 2023Q1

REPORT INFORMATION
  Report Type: Spontaneous
  Country: US (occurrence: US)
  Receive Date: 20220907
  Receipt Date: 20230103
  Transmission Date: 20230417
  Serious: No
  Sender: FDA-Public Use
  Company Number: US-BAYER-2022A118582

PATIENT
  Age: 72 Year
  Sex: Female

DRUGS (1)
  1. MIRALAX [Suspect]
     Active Substance: POLYETHYLENE GLYCOL 3350
     Indication: Muscle disorder
     Dosage: 0.5 DF, QD FOR YEARS
     Route: 048

REACTIONS (2)
  - Anal incontinence [Unknown]
  - Product use in unapproved indication [None]
